FAERS Safety Report 6349808-6 (Version None)
Quarter: 2009Q3

REPORT INFORMATION
  Report Type: 
  Country: None (occurrence: None)
  Receive Date: 20090911
  Receipt Date: 20090902
  Transmission Date: 20100115
  Serious: Yes (Hospitalization, Other)
  Sender: FDA-Public Use
  Company Number: JP-MERCK-0909USA00935

PATIENT
  Age: 80 Year
  Sex: Female
  Weight: 43 kg

DRUGS (13)
  1. PEPCID RPD [Suspect]
     Route: 048
     Dates: start: 20051226, end: 20060709
  2. PEPCID RPD [Suspect]
     Route: 048
     Dates: start: 20060710
  3. LASIX [Suspect]
     Route: 048
     Dates: start: 20051226, end: 20060521
  4. LASIX [Suspect]
     Route: 048
     Dates: start: 20060522, end: 20060710
  5. ALDACTONE [Concomitant]
     Route: 065
     Dates: start: 20051226
  6. ROCALTROL [Concomitant]
     Route: 065
     Dates: start: 20051226
  7. CONIEL [Concomitant]
     Route: 065
     Dates: start: 20051226, end: 20060522
  8. SYMMETREL [Suspect]
     Route: 048
     Dates: start: 20051226
  9. FOSAMAX [Suspect]
     Route: 048
     Dates: start: 20060226, end: 20060710
  10. SERMION [Concomitant]
     Route: 065
     Dates: start: 20051226
  11. PANALDINE [Concomitant]
     Route: 065
     Dates: start: 20051226
  12. FLUITRAN [Concomitant]
     Route: 065
     Dates: start: 20060226
  13. YODEL S [Concomitant]
     Route: 065

REACTIONS (2)
  - DEMENTIA WITH LEWY BODIES [None]
  - RENAL IMPAIRMENT [None]
